FAERS Safety Report 5266344-9 (Version None)
Quarter: 2007Q1

REPORT INFORMATION
  Report Type: 
  Country: None (occurrence: None)
  Receive Date: 20070315
  Receipt Date: 20070306
  Transmission Date: 20070707
  Serious: Yes (Life-Threatening)
  Sender: FDA-Public Use
  Company Number: US-BAXTER-2007BH002694

PATIENT
  Age: 15 Year
  Sex: Male

DRUGS (2)
  1. FEIBA VH IMMUNO [Suspect]
     Indication: FACTOR VIII DEFICIENCY
     Dosage: DOSE UNIT:UNITS PER KILOGRAM
     Route: 065
     Dates: start: 19800101
  2. FEIBA VH IMMUNO [Suspect]
     Dosage: DOSE UNIT:UNITS PER KILOGRAM
     Route: 065
     Dates: start: 19860101

REACTIONS (2)
  - CARDIAC FAILURE CONGESTIVE [None]
  - MYOCARDIAL INFARCTION [None]
